FAERS Safety Report 12981991 (Version 1)
Quarter: 2016Q4

REPORT INFORMATION
  Report Type: Spontaneous
  Country: IT (occurrence: IT)
  Receive Date: 20161129
  Receipt Date: 20161129
  Transmission Date: 20170207
  Serious: Yes (Life-Threatening)
  Sender: FDA-Public Use
  Company Number: IT-PURDUE PHARMA-GBR-2016-0041925

PATIENT
  Age: 45 Year
  Sex: Male

DRUGS (5)
  1. HEPARIN [Concomitant]
     Active Substance: HEPARIN SODIUM
  2. ACTILYSE [Suspect]
     Active Substance: ALTEPLASE
     Indication: THROMBOLYSIS
     Dosage: 15 MG, DAILY
     Route: 065
  3. ASPIRINA [Concomitant]
     Active Substance: ASPIRIN
     Indication: CHEST PAIN
     Dosage: 500 MG, UNK
     Route: 042
  4. ABCIXIMAB [Concomitant]
     Active Substance: ABCIXIMAB
     Indication: CHEST PAIN
     Dosage: 18 MG, UNK
     Route: 040
  5. MORPHINE SULFATE. [Suspect]
     Active Substance: MORPHINE SULFATE
     Indication: CHEST PAIN
     Dosage: 1 MG, DAILY
     Route: 065

REACTIONS (1)
  - Embolism [Recovered/Resolved]
